FAERS Safety Report 21986851 (Version 1)
Quarter: 2023Q1

REPORT INFORMATION
  Report Type: Spontaneous
  Country: BE (occurrence: BE)
  Receive Date: 20230213
  Receipt Date: 20230213
  Transmission Date: 20230418
  Serious: Yes (Other)
  Sender: FDA-Public Use
  Company Number: BE-BAUSCH-BL-2023-002669

PATIENT
  Sex: Male

DRUGS (13)
  1. LORAZEPAM [Suspect]
     Active Substance: LORAZEPAM
     Indication: Product used for unknown indication
     Dosage: PURCHASE NUMEROUS BOXES 01/JAN/2021 TO 18/OCT/2021
     Route: 065
  2. ZOLPIDEM [Suspect]
     Active Substance: ZOLPIDEM TARTRATE
     Indication: Product used for unknown indication
     Dosage: PURCHASE NUMEROUS BOXES 01/JAN/2021 TO 18/OCT/2021
     Route: 065
  3. TRAMADOL [Suspect]
     Active Substance: TRAMADOL
     Indication: Product used for unknown indication
     Dosage: PURCHASE NUMEROUS BOXES 01/JAN/2021 TO 18/OCT/2021
     Route: 065
  4. TRAMADOL [Suspect]
     Active Substance: TRAMADOL
     Dosage: PURCHASE NUMEROUS BOXES 01/JAN/2021 TO 18/OCT/2021
     Route: 065
  5. TRAMADOL [Suspect]
     Active Substance: TRAMADOL
     Dosage: PURCHASE NUMEROUS BOXES 01/JAN/2021 TO 18/OCT/2021
     Route: 065
  6. TRAMADOL [Suspect]
     Active Substance: TRAMADOL
     Dosage: PURCHASE NUMEROUS BOXES 01/JAN/2021 TO 18/OCT/2021
     Route: 065
  7. TRAMADOL HYDROCHLORIDE [Suspect]
     Active Substance: TRAMADOL HYDROCHLORIDE
     Indication: Product used for unknown indication
     Dosage: PURCHASE NUMEROUS BOXES 01/JAN/2021 TO 18/OCT/2021
     Route: 065
  8. METHYLPHENIDATE HYDROCHLORIDE [Suspect]
     Active Substance: METHYLPHENIDATE HYDROCHLORIDE
     Indication: Product used for unknown indication
     Dosage: PURCHASE NUMEROUS BOXES 01/JAN/2021 TO 18/OCT/2021
     Route: 065
  9. METHYLPHENIDATE HYDROCHLORIDE [Suspect]
     Active Substance: METHYLPHENIDATE HYDROCHLORIDE
     Dosage: PURCHASE NUMEROUS BOXES 01/JAN/2021 TO 18/OCT/2021
     Route: 065
  10. TRAMADOL HYDROCHLORIDE [Suspect]
     Active Substance: TRAMADOL HYDROCHLORIDE
     Indication: Product used for unknown indication
     Dosage: PURCHASE NUMEROUS BOXES 01/JAN/2021 TO 18/OCT/2021
     Route: 065
  11. METHYLPHENIDATE HYDROCHLORIDE [Suspect]
     Active Substance: METHYLPHENIDATE HYDROCHLORIDE
     Indication: Product used for unknown indication
     Dosage: PURCHASE NUMEROUS BOXES 01/JAN/2021 TO 18/OCT/2021
     Route: 065
  12. VALACYCLOVIR HYDROCHLORIDE [Suspect]
     Active Substance: VALACYCLOVIR HYDROCHLORIDE
     Indication: Product used for unknown indication
     Dosage: PURCHASE NUMEROUS BOXES 01/JAN/2021 TO 18/OCT/2021
     Route: 065
  13. ACETAMINOPHEN\CODEINE PHOSPHATE [Suspect]
     Active Substance: ACETAMINOPHEN\CODEINE PHOSPHATE
     Indication: Product used for unknown indication
     Dosage: PURCHASE NUMEROUS BOXES 01/JAN/2021 TO 18/OCT/2021
     Route: 065

REACTIONS (2)
  - Drug diversion [Unknown]
  - Drug abuse [Unknown]
